FAERS Safety Report 17381542 (Version 1)
Quarter: 2020Q1

REPORT INFORMATION
  Report Type: Spontaneous
  Country: US (occurrence: US)
  Receive Date: 20200206
  Receipt Date: 20200206
  Transmission Date: 20200409
  Serious: Yes (Other)
  Sender: FDA-Public Use
  Company Number: US-ABBVIE-19K-163-2797050-00

PATIENT
  Age: 54 Year
  Sex: Female
  Weight: 77.18 kg

DRUGS (4)
  1. HUMIRA [Suspect]
     Active Substance: ADALIMUMAB
     Indication: CROHN^S DISEASE
     Route: 058
     Dates: start: 2016, end: 201708
  2. IMODIUM [Concomitant]
     Active Substance: LOPERAMIDE HYDROCHLORIDE
     Indication: CROHN^S DISEASE
  3. HUMIRA [Suspect]
     Active Substance: ADALIMUMAB
     Route: 058
     Dates: start: 201803
  4. CIPRO [Suspect]
     Active Substance: CIPROFLOXACIN HYDROCHLORIDE
     Indication: WOUND INFECTION
     Route: 065

REACTIONS (10)
  - Injection site pain [Not Recovered/Not Resolved]
  - Joint lock [Recovered/Resolved]
  - Incorrect dose administered [Not Recovered/Not Resolved]
  - Wound infection [Recovered/Resolved]
  - Hypersensitivity [Not Recovered/Not Resolved]
  - Mood altered [Recovered/Resolved]
  - Device issue [Not Recovered/Not Resolved]
  - Depression [Recovered/Resolved]
  - Impaired healing [Recovered/Resolved]
  - Abscess intestinal [Recovered/Resolved]

NARRATIVE: CASE EVENT DATE: 2017
